FAERS Safety Report 5519264-6 (Version None)
Quarter: 2007Q4

REPORT INFORMATION
  Report Type: 
  Country: None (occurrence: None)
  Receive Date: 20071116
  Receipt Date: 20071107
  Transmission Date: 20080405
  Serious: Yes (Hospitalization)
  Sender: FDA-Public Use
  Company Number: US-AMGEN-STX251590

PATIENT
  Sex: Male

DRUGS (1)
  1. ENBREL [Suspect]
     Indication: PSORIASIS
     Route: 058
     Dates: start: 20070101

REACTIONS (5)
  - BLOOD GLUCOSE INCREASED [None]
  - POSTNASAL DRIP [None]
  - PSORIASIS [None]
  - SINUSITIS [None]
  - SPINAL COLUMN STENOSIS [None]
